FAERS Safety Report 8209663-6 (Version None)
Quarter: 2012Q1

REPORT INFORMATION
  Report Type: 
  Country: None (occurrence: None)
  Receive Date: 20120314
  Receipt Date: 20120312
  Transmission Date: 20120608
  Serious: Yes (Other)
  Sender: FDA-Public Use
  Company Number: US-PFIZER INC-2012046778

PATIENT
  Sex: Female

DRUGS (2)
  1. ALPRAZOLAM [Suspect]
     Dosage: UNK
  2. ALPRAZOLAM [Suspect]
     Dosage: 0.5 MG, UNK

REACTIONS (6)
  - VISION BLURRED [None]
  - COELIAC DISEASE [None]
  - GASTRIC ULCER [None]
  - THERAPEUTIC RESPONSE DECREASED [None]
  - FIBROMYALGIA [None]
  - ANXIETY [None]
